FAERS Safety Report 24254158 (Version 1)
Quarter: 2024Q3

REPORT INFORMATION
  Report Type: Spontaneous
  Country: SE (occurrence: SE)
  Receive Date: 20240827
  Receipt Date: 20240827
  Transmission Date: 20241016
  Serious: Yes (Hospitalization)
  Sender: VERTEX
  Company Number: None

PATIENT
  Age: 45 Year
  Sex: Female

DRUGS (2)
  1. ELEXACAFTOR\IVACAFTOR\TEZACAFTOR [Suspect]
     Active Substance: ELEXACAFTOR\IVACAFTOR\TEZACAFTOR
     Indication: Cystic fibrosis
     Dosage: UNKNOWN DOSAGE REGIMEN
     Route: 048
     Dates: start: 20240102, end: 20240402
  2. BETA-2 [Concomitant]
     Dosage: UNK
     Dates: start: 20141231

REACTIONS (3)
  - Crohn^s disease [Not Recovered/Not Resolved]
  - Drug hypersensitivity [Recovered/Resolved]
  - Essential hypertension [Recovered/Resolved]

NARRATIVE: CASE EVENT DATE: 20240214
